FAERS Safety Report 16327684 (Version 1)
Quarter: 2019Q2

REPORT INFORMATION
  Report Type: Spontaneous
  Country: US (occurrence: US)
  Receive Date: 20190517
  Receipt Date: 20190517
  Transmission Date: 20190711
  Serious: Yes (Other)
  Sender: FDA-Public Use
  Company Number: PHEH2019US021068

PATIENT
  Sex: Female

DRUGS (3)
  1. TASIGNA [Suspect]
     Active Substance: NILOTINIB
     Indication: CHRONIC MYELOID LEUKAEMIA
     Dosage: 2 DF, BID
     Route: 048
  2. GLEEVEC [Suspect]
     Active Substance: IMATINIB MESYLATE
     Indication: CHRONIC MYELOID LEUKAEMIA
     Dosage: UNK
     Route: 048
     Dates: start: 20020105, end: 2007
  3. SPRYCEL [Suspect]
     Active Substance: DASATINIB
     Indication: CHRONIC MYELOID LEUKAEMIA
     Dosage: UNK
     Route: 065
     Dates: start: 200712, end: 200807

REACTIONS (71)
  - Ovarian cyst ruptured [Unknown]
  - Rhinitis allergic [Unknown]
  - Hiatus hernia [Unknown]
  - Abdominal pain upper [Unknown]
  - Hypoaesthesia [Unknown]
  - Cerebrovascular accident [Unknown]
  - Intervertebral disc disorder [Unknown]
  - Sleep apnoea syndrome [Unknown]
  - Dyspnoea [Unknown]
  - Menstruation irregular [Unknown]
  - Decreased appetite [Unknown]
  - Upper respiratory tract infection [Unknown]
  - Dizziness [Unknown]
  - Renal failure [Unknown]
  - Hot flush [Unknown]
  - Chronic obstructive pulmonary disease [Unknown]
  - Acne [Unknown]
  - Carpal tunnel syndrome [Unknown]
  - Pruritus [Unknown]
  - Perforation [Unknown]
  - Arthralgia [Unknown]
  - Weight decreased [Unknown]
  - Diverticulitis [Unknown]
  - Ascites [Unknown]
  - Neuropathy peripheral [Unknown]
  - Rhinorrhoea [Unknown]
  - Sleep disorder [Unknown]
  - Spinal column injury [Unknown]
  - Oesophagitis [Unknown]
  - Insomnia [Unknown]
  - Fatigue [Unknown]
  - Myalgia [Unknown]
  - Pleural effusion [Unknown]
  - Palpitations [Unknown]
  - Cellulitis [Unknown]
  - Deafness [Unknown]
  - Musculoskeletal chest pain [Unknown]
  - Fibromyalgia [Unknown]
  - Nausea [Unknown]
  - Dry eye [Unknown]
  - Affective disorder [Unknown]
  - Neck pain [Unknown]
  - Hepatic steatosis [Unknown]
  - Night sweats [Unknown]
  - Cough [Unknown]
  - Muscle spasms [Unknown]
  - Vomiting [Unknown]
  - Abdominal pain [Unknown]
  - Small intestinal obstruction [Unknown]
  - Stress [Unknown]
  - Cholelithiasis [Unknown]
  - Bronchitis [Unknown]
  - Pelvic fluid collection [Unknown]
  - Dysuria [Unknown]
  - Anaemia [Unknown]
  - Diarrhoea [Unknown]
  - Rash [Unknown]
  - Musculoskeletal pain [Unknown]
  - Arthritis [Unknown]
  - Psoriasis [Unknown]
  - Gastritis [Unknown]
  - Tinnitus [Unknown]
  - Mitral valve incompetence [Unknown]
  - Tricuspid valve incompetence [Unknown]
  - Obesity [Unknown]
  - Left ventricular hypertrophy [Unknown]
  - Lumbar spinal stenosis [Unknown]
  - Oedema peripheral [Unknown]
  - Conjunctivitis [Unknown]
  - Dyspepsia [Unknown]
  - Dysphagia [Unknown]
